FAERS Safety Report 18131103 (Version 1)
Quarter: 2020Q3

REPORT INFORMATION
  Report Type: Spontaneous
  Country: US (occurrence: US)
  Receive Date: 20200810
  Receipt Date: 20200810
  Transmission Date: 20201103
  Serious: No
  Sender: FDA-Public Use
  Company Number: US-ARBOR PHARMACEUTICALS, LLC-US-2020ARB000443

PATIENT
  Age: 32 Year
  Sex: Male

DRUGS (2)
  1. ZENZEDI [Suspect]
     Active Substance: DEXTROAMPHETAMINE SULFATE
     Indication: PRODUCT USED FOR UNKNOWN INDICATION
     Dosage: UNK
  2. EVEKEO ODT [Suspect]
     Active Substance: AMPHETAMINE SULFATE
     Indication: PRODUCT USED FOR UNKNOWN INDICATION
     Dosage: 1 TABLET, BID
     Route: 048

REACTIONS (4)
  - Product use issue [Unknown]
  - Decreased appetite [Unknown]
  - Migraine [Unknown]
  - Abdominal pain upper [Unknown]
